FAERS Safety Report 8330906-2 (Version None)
Quarter: 2012Q2

REPORT INFORMATION
  Report Type: 
  Country: None (occurrence: None)
  Receive Date: 20120502
  Receipt Date: 20120427
  Transmission Date: 20120825
  Serious: Yes (Other)
  Sender: FDA-Public Use
  Company Number: US-PFIZER INC-2012105074

PATIENT
  Sex: Female
  Weight: 89.796 kg

DRUGS (3)
  1. PREMARIN [Suspect]
     Indication: SEXUAL DYSFUNCTION
     Dosage: UNK, 3X/WEEK
     Route: 067
  2. NOVOLOG [Concomitant]
     Indication: TYPE 1 DIABETES MELLITUS
     Dosage: 14 IU IN MORNING, 12 IU IN AFTERNOON AND 24 IU AT NIGHT
  3. LEVERMIR [Concomitant]
     Indication: TYPE 1 DIABETES MELLITUS
     Dosage: 38 IU IN MORNING AND 42 IU AT NIGHT

REACTIONS (2)
  - GRAND MAL CONVULSION [None]
  - MENINGIOMA [None]
